FAERS Safety Report 6425504-1 (Version None)
Quarter: 2009Q4

REPORT INFORMATION
  Report Type: 
  Country: None (occurrence: None)
  Receive Date: 20091103
  Receipt Date: 20091022
  Transmission Date: 20100525
  Serious: Yes (Hospitalization)
  Sender: FDA-Public Use
  Company Number: US-WYE-H11789709

PATIENT
  Sex: Female
  Weight: 64.83 kg

DRUGS (4)
  1. METHYLNALTREXONE BROMIDE [Suspect]
     Indication: CONSTIPATION
     Route: 058
     Dates: start: 20090622
  2. LORAZEPAM [Concomitant]
     Indication: ANXIETY
     Dosage: UNKNOWN
     Route: 065
     Dates: start: 20080101
  3. GEODON [Concomitant]
     Indication: DEPRESSION
     Dosage: UNKNOWN
     Route: 065
     Dates: start: 20080101
  4. CARBAMAZEPINE [Concomitant]
     Indication: DEPRESSION
     Dosage: UNSPECIFIED
     Route: 065
     Dates: start: 20080101

REACTIONS (2)
  - CONDITION AGGRAVATED [None]
  - DEPRESSION [None]
